FAERS Safety Report 12776357 (Version 1)
Quarter: 2016Q3

REPORT INFORMATION
  Report Type: Spontaneous
  Country: AT (occurrence: AT)
  Receive Date: 20160923
  Receipt Date: 20160923
  Transmission Date: 20161109
  Serious: Yes (Death, Hospitalization)
  Sender: FDA-Public Use
  Company Number: AT-DEPOMED, INC.-AT-2016DEP012032

PATIENT
  Age: 88 Year
  Sex: Female
  Weight: 60 kg

DRUGS (1)
  1. FENTANYL. [Suspect]
     Active Substance: FENTANYL
     Indication: ARTHRALGIA
     Dosage: UNK
     Route: 062

REACTIONS (29)
  - Generalised non-convulsive epilepsy [Recovered/Resolved]
  - Myocarditis [Not Recovered/Not Resolved]
  - Quadriplegia [Unknown]
  - Personality change [Unknown]
  - Atrial fibrillation [Unknown]
  - Tachycardia [Unknown]
  - Thrombocytopenia [Unknown]
  - Aphasia [Unknown]
  - Multiple organ dysfunction syndrome [Fatal]
  - Cardiac tamponade [Not Recovered/Not Resolved]
  - Embolic stroke [Unknown]
  - Pyrexia [Fatal]
  - Coma [Not Recovered/Not Resolved]
  - Myocardial rupture [Not Recovered/Not Resolved]
  - Inflammation [Not Recovered/Not Resolved]
  - Myocardial oedema [Not Recovered/Not Resolved]
  - Acute kidney injury [Fatal]
  - Hepatic function abnormal [Fatal]
  - Oliguria [Fatal]
  - Aortic valve incompetence [Fatal]
  - Loss of consciousness [Not Recovered/Not Resolved]
  - Hypotension [Unknown]
  - Anaemia [Unknown]
  - Staphylococcal sepsis [Fatal]
  - Dermatitis allergic [Unknown]
  - Endocarditis [Not Recovered/Not Resolved]
  - Pyramidal tract syndrome [Unknown]
  - C-reactive protein increased [Unknown]
  - IIIrd nerve paralysis [Unknown]
